FAERS Safety Report 6031055-9 (Version None)
Quarter: 2008Q4

REPORT INFORMATION
  Report Type: 
  Country: None (occurrence: None)
  Receive Date: 20081222
  Receipt Date: 20081009
  Transmission Date: 20090506
  Serious: No
  Sender: FDA-Public Use
  Company Number: ALL1-2008-02938

PATIENT
  Age: 43 Year
  Sex: Female
  Weight: 68.9 kg

DRUGS (10)
  1. VYVANSE [Suspect]
     Indication: ATTENTION DEFICIT/HYPERACTIVITY DISORDER
     Dosage: 70 MG, 1X/DAY:QD, ORAL
     Route: 048
     Dates: start: 20071001
  2. WELLBUTRIN [Concomitant]
  3. RALTEGRAVIR (RALTEGRAVIR) [Concomitant]
  4. PREZISTA [Concomitant]
  5. CYMBALTA [Concomitant]
  6. XANAX [Concomitant]
  7. DIDANOSINE [Concomitant]
  8. NORVIR [Concomitant]
  9. FUZEON [Concomitant]
  10. SEROQUEL [Concomitant]

REACTIONS (6)
  - DISTURBANCE IN ATTENTION [None]
  - DRUG INEFFECTIVE [None]
  - FATIGUE [None]
  - LETHARGY [None]
  - PRODUCT QUALITY ISSUE [None]
  - SCIATICA [None]
